FAERS Safety Report 8911533 (Version 1)
Quarter: 2012Q4

REPORT INFORMATION
  Report Type: Spontaneous
  Country: PL (occurrence: None)
  Receive Date: 20121113
  Receipt Date: 20121113
  Transmission Date: 20130627
  Serious: Yes (Hospitalization)
  Sender: FDA-Public Use
  Company Number: AUR-APL-2012-04846

PATIENT
  Age: 46 Year
  Sex: Female
  Weight: 100 kg

DRUGS (6)
  1. VALSARTAN, AMLODIPINE [Suspect]
     Indication: HYPERTENSION
  2. AMLODIPIN [Suspect]
     Indication: HYPERTENSION
  3. FUROSEMIDE (FUROSEMIDE) [Suspect]
     Indication: HYPERTENSION
  4. ATORVASTATIN (ATORVASTATIN) [Concomitant]
  5. FENOFIBRATE (FENOFIBRATE) [Concomitant]
  6. POTASSIUM (POTASSIUM) [Concomitant]

REACTIONS (6)
  - Hypertension [None]
  - Fatigue [None]
  - Middle insomnia [None]
  - Somnolence [None]
  - Snoring [None]
  - Weight increased [None]
